FAERS Safety Report 14438943 (Version 1)
Quarter: 2018Q1

REPORT INFORMATION
  Report Type: Spontaneous
  Country: US (occurrence: US)
  Receive Date: 20180125
  Receipt Date: 20180125
  Transmission Date: 20180509
  Serious: No
  Sender: FDA-Public Use
  Company Number: US-UNITED THERAPEUTICS-UNT-2017-013514

PATIENT
  Sex: Female
  Weight: 107.48 kg

DRUGS (3)
  1. REMODULIN [Suspect]
     Active Substance: TREPROSTINIL
     Indication: PULMONARY ARTERIAL HYPERTENSION
     Dosage: 0.00825 ?G/KG, CONTINUING
     Route: 041
     Dates: start: 20170911
  2. REMODULIN [Suspect]
     Active Substance: TREPROSTINIL
     Dosage: 0.017 ?G/KG, CONTINUING
     Route: 041
     Dates: start: 20170916
  3. REMODULIN [Suspect]
     Active Substance: TREPROSTINIL
     Dosage: 0.0185?G/KG, UD
     Route: 041

REACTIONS (4)
  - Vomiting [Unknown]
  - Pain in extremity [Unknown]
  - Headache [Unknown]
  - Oxygen consumption increased [Unknown]

NARRATIVE: CASE EVENT DATE: 2017
